FAERS Safety Report 16181879 (Version 2)
Quarter: 2019Q4

REPORT INFORMATION
  Report Type: Spontaneous
  Country: DE (occurrence: DE)
  Receive Date: 20190411
  Receipt Date: 20191106
  Transmission Date: 20200122
  Serious: Yes (Other)
  Sender: FDA-Public Use
  Company Number: DE-009507513-1904DEU002980

PATIENT
  Age: 64 Year
  Sex: Male

DRUGS (7)
  1. PEMBROLIZUMAB. [Suspect]
     Active Substance: PEMBROLIZUMAB
     Dosage: 2 MG/KG EVERY 3 WEEKS
     Dates: start: 20180423
  2. PEMBROLIZUMAB. [Suspect]
     Active Substance: PEMBROLIZUMAB
     Dosage: 2 MG/KG EVERY 3 WEEKS
     Dates: start: 20180608
  3. PEMBROLIZUMAB. [Suspect]
     Active Substance: PEMBROLIZUMAB
     Indication: NON-SMALL CELL LUNG CANCER
     Dosage: 2 MG/KG EVERY 3 WEEKS
     Dates: start: 20180315
  4. PEMBROLIZUMAB. [Suspect]
     Active Substance: PEMBROLIZUMAB
     Dosage: 2 MG/KG EVERY 3 WEEKS
     Dates: start: 20180717
  5. PEMBROLIZUMAB. [Suspect]
     Active Substance: PEMBROLIZUMAB
     Dosage: 2 MG/KG EVERY 3 WEEKS
     Dates: start: 20180808
  6. PEMBROLIZUMAB. [Suspect]
     Active Substance: PEMBROLIZUMAB
     Dosage: 2 MG/KG EVERY 3 WEEKS
     Dates: start: 20180403
  7. PEMBROLIZUMAB. [Suspect]
     Active Substance: PEMBROLIZUMAB
     Dosage: 2 MG/KG EVERY 3 WEEKS
     Dates: start: 20180516

REACTIONS (9)
  - Pulmonary fibrosis [Unknown]
  - Malignant neoplasm progression [Unknown]
  - Malignant neoplasm progression [Unknown]
  - Lymphadenopathy [Unknown]
  - Inappropriate schedule of product administration [Unknown]
  - Brachiocephalic vein thrombosis [Unknown]
  - Lumbar vertebral fracture [Unknown]
  - Oncologic complication [Unknown]
  - Colitis [Unknown]

NARRATIVE: CASE EVENT DATE: 2018
